FAERS Safety Report 12510829 (Version 2)
Quarter: 2016Q3

REPORT INFORMATION
  Report Type: Spontaneous
  Country: US (occurrence: US)
  Receive Date: 20160629
  Receipt Date: 20160913
  Transmission Date: 20161109
  Serious: No
  Sender: FDA-Public Use
  Company Number: US-RECKITT BENCKISER HEALTHCARE INT LIMITED-RB-83082-2016

PATIENT
  Age: 54 Month
  Sex: Female

DRUGS (1)
  1. MUCINEX [Suspect]
     Active Substance: GUAIFENESIN
     Indication: COUGH
     Dosage: 5 ML EVERY 5 HOURS AND TOOK TOTAL OF 3 DOSES
     Route: 065
     Dates: start: 20160205, end: 20160206

REACTIONS (1)
  - Drug ineffective [Not Recovered/Not Resolved]
